FAERS Safety Report 16150083 (Version 1)
Quarter: 2019Q2

REPORT INFORMATION
  Report Type: Spontaneous
  Country: US (occurrence: US)
  Receive Date: 20190402
  Receipt Date: 20190402
  Transmission Date: 20190711
  Serious: Yes (Hospitalization)
  Sender: FDA-Public Use
  Company Number: None

PATIENT
  Sex: Female

DRUGS (12)
  1. DIAZEPAM. [Concomitant]
     Active Substance: DIAZEPAM
  2. CYCLOBENZAPRINE. [Concomitant]
     Active Substance: CYCLOBENZAPRINE
  3. VRAYLAR [Concomitant]
     Active Substance: CARIPRAZINE
  4. LEVOTHYROXINE. [Concomitant]
     Active Substance: LEVOTHYROXINE
  5. ENBREL [Suspect]
     Active Substance: ETANERCEPT
     Indication: RHEUMATOID ARTHRITIS
     Dosage: ?          OTHER FREQUENCY:WEEKLY;?
     Route: 058
     Dates: start: 20190103
  6. HYDROCODONE BITARTRATE AND ACETAMINOPHEN [Concomitant]
     Active Substance: ACETAMINOPHEN\HYDROCODONE BITARTRATE
  7. ESCITALOPRAM [Concomitant]
     Active Substance: ESCITALOPRAM OXALATE
  8. SAXENDA [Concomitant]
     Active Substance: LIRAGLUTIDE
  9. AMPHETAMINE.DEXTROAMPHETAMINE [Concomitant]
  10. TRESIBA [Concomitant]
     Active Substance: INSULIN DEGLUDEC
  11. AMITRIPTYLINE [Concomitant]
     Active Substance: AMITRIPTYLINE
  12. GABAPENTIN. [Concomitant]
     Active Substance: GABAPENTIN

REACTIONS (1)
  - Surgery [None]
